FAERS Safety Report 12735723 (Version 1)
Quarter: 2016Q3

REPORT INFORMATION
  Report Type: Spontaneous
  Country: AU (occurrence: AU)
  Receive Date: 20160912
  Receipt Date: 20160912
  Transmission Date: 20161109
  Serious: Yes (Hospitalization, Other)
  Sender: FDA-Public Use
  Company Number: AU-GLAXOSMITHKLINE-AU2016GSK132431

PATIENT
  Age: 60 Year
  Sex: Female

DRUGS (2)
  1. BACTROBAN [Suspect]
     Active Substance: MUPIROCIN\MUPIROCIN CALCIUM
     Indication: BACTERIAL INFECTION
     Dosage: UNK
     Route: 067
     Dates: start: 20151116
  2. VAGIFEM [Concomitant]
     Active Substance: ESTRADIOL
     Route: 067

REACTIONS (11)
  - Constipation [Unknown]
  - Swelling [Unknown]
  - Bladder dilatation [Unknown]
  - Renal pain [Unknown]
  - Urinary retention [Unknown]
  - Burning sensation [Unknown]
  - Ureteric dilatation [Unknown]
  - Candida infection [Unknown]
  - Erythema [Unknown]
  - Off label use [Unknown]
  - Cardiac fibrillation [Unknown]
